FAERS Safety Report 12795509 (Version 1)
Quarter: 2016Q3

REPORT INFORMATION
  Report Type: Spontaneous
  Country: US (occurrence: US)
  Receive Date: 20160929
  Receipt Date: 20160929
  Transmission Date: 20161109
  Serious: No
  Sender: FDA-Public Use
  Company Number: US-SEBELA IRELAND LIMITED-2016SEB00227

PATIENT

DRUGS (4)
  1. IMURAN [Concomitant]
     Active Substance: AZATHIOPRINE
  2. ZYLOPRIM [Suspect]
     Active Substance: ALLOPURINOL
     Indication: CROHN^S DISEASE
     Dosage: 100 MG, DAILY
     Dates: start: 20151103, end: 201511
  3. ZYLOPRIM [Suspect]
     Active Substance: ALLOPURINOL
     Dosage: 100 MG, UNK
     Dates: start: 201512
  4. ZYLOPRIM [Suspect]
     Active Substance: ALLOPURINOL
     Dosage: 50 MG, DAILY
     Dates: start: 201511, end: 201511

REACTIONS (2)
  - Pain [Not Recovered/Not Resolved]
  - Pyrexia [Not Recovered/Not Resolved]

NARRATIVE: CASE EVENT DATE: 20151104
